FAERS Safety Report 6487216-8 (Version None)
Quarter: 2009Q4

REPORT INFORMATION
  Report Type: 
  Country: None (occurrence: None)
  Receive Date: 20091210
  Receipt Date: 20091202
  Transmission Date: 20100525
  Serious: Yes (Hospitalization)
  Sender: FDA-Public Use
  Company Number: US-WYE-H12457709

PATIENT
  Sex: Male
  Weight: 79.45 kg

DRUGS (6)
  1. PRISTIQ [Suspect]
     Indication: DEPRESSION
     Route: 048
     Dates: start: 20090801, end: 20090101
  2. PRISTIQ [Suspect]
     Route: 048
     Dates: start: 20090101, end: 20090101
  3. PRISTIQ [Suspect]
     Route: 048
     Dates: start: 20090101, end: 20091101
  4. LITHIUM [Concomitant]
  5. REMERON [Concomitant]
     Dosage: UNKNOWN
  6. PAXIL [Concomitant]
     Dosage: UNKNOWN

REACTIONS (8)
  - ASTHMA [None]
  - CONDITION AGGRAVATED [None]
  - DRUG INEFFECTIVE [None]
  - DRUG WITHDRAWAL SYNDROME [None]
  - HEADACHE [None]
  - INFLUENZA LIKE ILLNESS [None]
  - PNEUMONIA [None]
  - RASH [None]
